FAERS Safety Report 10224670 (Version 1)
Quarter: 2014Q2

REPORT INFORMATION
  Report Type: Spontaneous
  Country: US (occurrence: US)
  Receive Date: 20140609
  Receipt Date: 20140609
  Transmission Date: 20141212
  Serious: No
  Sender: FDA-Public Use
  Company Number: US-MYLANLABS-2014S1010250

PATIENT
  Age: 53 Year
  Sex: Female

DRUGS (7)
  1. PIOGLITAZONE TABLETS USP [Suspect]
     Indication: DIABETES MELLITUS
     Route: 048
     Dates: start: 201402, end: 20140420
  2. METFORMIN [Concomitant]
     Indication: DIABETES MELLITUS
  3. NORVASC [Concomitant]
     Indication: BLOOD PRESSURE INCREASED
  4. PREDNISONE [Concomitant]
     Indication: ASTHMA
  5. SINGULAIR [Concomitant]
     Indication: ASTHMA
  6. SYMBICORT [Concomitant]
     Indication: ASTHMA
  7. POTASSIUM [Concomitant]

REACTIONS (1)
  - Alopecia [Recovered/Resolved]
